FAERS Safety Report 23814606 (Version 1)
Quarter: 2024Q2

REPORT INFORMATION
  Report Type: Spontaneous
  Country: US (occurrence: US)
  Receive Date: 20240503
  Receipt Date: 20240503
  Transmission Date: 20240716
  Serious: Yes (Other)
  Sender: FDA-Public Use
  Company Number: US-Nobelpharma Co., Ltd.-NPA-2024-00702

PATIENT
  Sex: Female

DRUGS (11)
  1. HYFTOR [Suspect]
     Active Substance: SIROLIMUS
     Indication: Neoplasm malignant
     Dosage: APPLY TOPICALLY AS DIRECTED TWICE DAILY FOR 12 WEEKS
     Route: 003
     Dates: start: 20240323
  2. ARIPIPRAZOLE [Concomitant]
     Active Substance: ARIPIPRAZOLE
  3. DIAZEPAM [Concomitant]
     Active Substance: DIAZEPAM
  4. DIAZEPAM [Concomitant]
     Active Substance: DIAZEPAM
  5. DIAZEPAM [Concomitant]
     Active Substance: DIAZEPAM
  6. Essentl one [Concomitant]
  7. FOLIC ACID [Concomitant]
     Active Substance: FOLIC ACID
  8. IBUPROFEN [Concomitant]
     Active Substance: IBUPROFEN
  9. IBUPROFEN [Concomitant]
     Active Substance: IBUPROFEN
  10. LAMOTRIGINE [Concomitant]
     Active Substance: LAMOTRIGINE
  11. LAMOTRIGINE [Concomitant]
     Active Substance: LAMOTRIGINE

REACTIONS (3)
  - Seizure [Unknown]
  - Product dose omission issue [None]
  - Product use in unapproved indication [None]
